FAERS Safety Report 11376488 (Version 3)
Quarter: 2015Q3

REPORT INFORMATION
  Report Type: Report from Study
  Country: JP (occurrence: JP)
  Receive Date: 20150813
  Receipt Date: 20150917
  Transmission Date: 20151125
  Serious: Yes (Hospitalization, Other)
  Sender: FDA-Public Use
  Company Number: FR-GLAXOSMITHKLINE-FR2015GSK116318

PATIENT
  Age: 91 Year
  Sex: Female

DRUGS (11)
  1. MEVALOTIN [Concomitant]
     Active Substance: PRAVASTATIN SODIUM
     Dosage: UNK
     Dates: end: 20150710
  2. MAGMITT [Concomitant]
     Active Substance: MAGNESIUM OXIDE
  3. OLMETEC [Concomitant]
     Active Substance: OLMESARTAN MEDOXOMIL
  4. URALYT [Concomitant]
     Active Substance: POTASSIUM CITRATE\TRISODIUM CITRATE DIHYDRATE
  5. BAYASPIRIN [Concomitant]
     Active Substance: ASPIRIN
  6. OMEGA-3-ACID ETHYL ESTERS. [Suspect]
     Active Substance: OMEGA-3-ACID ETHYL ESTERS
     Indication: HYPERLIPIDAEMIA
     Dosage: 2 G, QD
     Route: 048
     Dates: start: 20140729, end: 20150710
  7. OMEPRAL [Concomitant]
     Active Substance: OMEPRAZOLE
  8. MEMANTINE HYDROCHLORIDE [Concomitant]
     Active Substance: MEMANTINE HYDROCHLORIDE
  9. ARICEPT [Concomitant]
     Active Substance: DONEPEZIL HYDROCHLORIDE
  10. JUVELA [Concomitant]
     Active Substance: .ALPHA.-TOCOPHEROL\RETINOL
  11. DOPS (NOS) [Concomitant]

REACTIONS (4)
  - Diarrhoea [Recovering/Resolving]
  - Condition aggravated [Unknown]
  - Haematochezia [Recovering/Resolving]
  - Rectal prolapse [Not Recovered/Not Resolved]

NARRATIVE: CASE EVENT DATE: 20150312
